FAERS Safety Report 6138807-5 (Version None)
Quarter: 2009Q1

REPORT INFORMATION
  Report Type: 
  Country: None (occurrence: None)
  Receive Date: 20090331
  Receipt Date: 20090326
  Transmission Date: 20090719
  Serious: Yes (Other)
  Sender: FDA-Public Use
  Company Number: US-SANOFI-SYNTHELABO-A03200802768

PATIENT
  Sex: Male
  Weight: 134.7 kg

DRUGS (1)
  1. ELOXATIN [Suspect]
     Indication: COLON CANCER METASTATIC
     Route: 042
     Dates: start: 20080606, end: 20080606

REACTIONS (2)
  - CONVULSION [None]
  - ENCEPHALOPATHY [None]
